FAERS Safety Report 21655102 (Version 1)
Quarter: 2022Q4

REPORT INFORMATION
  Report Type: Spontaneous
  Country: PL (occurrence: PL)
  Receive Date: 20221129
  Receipt Date: 20221129
  Transmission Date: 20230113
  Serious: Yes (Death, Other)
  Sender: FDA-Public Use
  Company Number: None

PATIENT
  Age: 24 Year
  Sex: Female

DRUGS (6)
  1. SERTRALINE HYDROCHLORIDE [Suspect]
     Active Substance: SERTRALINE HYDROCHLORIDE
     Indication: Drug dependence
     Route: 065
  2. ADINAZOLAM [Suspect]
     Active Substance: ADINAZOLAM
     Indication: Drug dependence
     Route: 065
  3. N-ETHYLHEXEDRONE [Suspect]
     Active Substance: N-ETHYLHEXEDRONE
     Indication: Drug dependence
     Route: 065
  4. U-47700 [Suspect]
     Active Substance: U-47700
     Indication: Drug dependence
     Route: 065
  5. CLIPREDRONE [Suspect]
     Active Substance: CLIPREDRONE
     Indication: Drug dependence
     Route: 065
  6. 4-CHLOROMETHCATHINONE [Suspect]
     Active Substance: 4-CHLOROMETHCATHINONE
     Indication: Drug dependence
     Route: 065

REACTIONS (3)
  - Poisoning [Fatal]
  - Suicide attempt [Fatal]
  - Overdose [Unknown]
